FAERS Safety Report 8459410-8 (Version None)
Quarter: 2012Q2

REPORT INFORMATION
  Report Type: 
  Country: None (occurrence: None)
  Receive Date: 20120622
  Receipt Date: 20120613
  Transmission Date: 20120825
  Serious: Yes (Other)
  Sender: FDA-Public Use
  Company Number: CA-JNJFOC-20120606814

PATIENT
  Sex: Male

DRUGS (3)
  1. RISPERDAL CONSTA [Suspect]
     Indication: PRODUCT USED FOR UNKNOWN INDICATION
     Route: 030
     Dates: start: 20120101
  2. RISPERDAL CONSTA [Suspect]
     Route: 030
     Dates: start: 20090101
  3. RISPERDAL CONSTA [Suspect]
     Route: 030
     Dates: start: 20120201, end: 20120101

REACTIONS (2)
  - HALLUCINATION [None]
  - OVERDOSE [None]
